FAERS Safety Report 16533069 (Version 1)
Quarter: 2019Q3

REPORT INFORMATION
  Report Type: Spontaneous
  Country: US (occurrence: US)
  Receive Date: 20190704
  Receipt Date: 20190704
  Transmission Date: 20191004
  Serious: No
  Sender: FDA-Public Use
  Company Number: US-RECKITT BENCKISER HEALTHCARE INT LIMITED-RB-90244-2018

PATIENT
  Age: 74 Year
  Sex: Female

DRUGS (3)
  1. MUCINEX DM [Suspect]
     Active Substance: DEXTROMETHORPHAN HYDROBROMIDE\GUAIFENESIN
     Indication: SINUS CONGESTION
  2. MUCINEX DM [Suspect]
     Active Substance: DEXTROMETHORPHAN HYDROBROMIDE\GUAIFENESIN
     Indication: BRONCHITIS
     Dosage: 600 MG, QD
     Route: 065
     Dates: start: 20180813
  3. MUCINEX DM [Suspect]
     Active Substance: DEXTROMETHORPHAN HYDROBROMIDE\GUAIFENESIN
     Indication: COUGH

REACTIONS (3)
  - Eye pain [Not Recovered/Not Resolved]
  - Headache [Recovered/Resolved]
  - Teething [Recovered/Resolved]

NARRATIVE: CASE EVENT DATE: 20180813
